FAERS Safety Report 8871879 (Version 1)
Quarter: 2012Q4

REPORT INFORMATION
  Report Type: Spontaneous
  Country: US (occurrence: None)
  Receive Date: 20121026
  Receipt Date: 20121026
  Transmission Date: 20130627
  Serious: Yes (Hospitalization)
  Sender: FDA-Public Use
  Company Number: None

PATIENT
  Sex: Female
  Weight: 139.6 kg

DRUGS (8)
  1. CYCLOPHOSPHAMIDE [Suspect]
     Dates: end: 20121009
  2. DOXORUBICIN HYDROCHLORIDE [Suspect]
     Dates: end: 20121009
  3. PACLITAXEL [Suspect]
     Dates: end: 20120828
  4. PEGFILGRASTIM [Suspect]
     Dates: end: 20121010
  5. PACKED RED BLOOD CELLS [Concomitant]
  6. ALBUTEROL-IPRATROPIUM MDI [Concomitant]
  7. DEXAMETHASONE [Concomitant]
  8. FONDAPARINUX [Concomitant]

REACTIONS (6)
  - Chills [None]
  - Fatigue [None]
  - Body temperature increased [None]
  - Neutropenia [None]
  - Hypotension [None]
  - Dyspnoea [None]
